FAERS Safety Report 4585721-2 (Version None)
Quarter: 2005Q1

REPORT INFORMATION
  Report Type: 
  Country: None (occurrence: None)
  Receive Date: 20050214
  Receipt Date: 20041228
  Transmission Date: 20050727
  Serious: Yes (Death, Hospitalization)
  Sender: FDA-Public Use
  Company Number: 05-107

PATIENT
  Age: 54 Year
  Sex: Female

DRUGS (16)
  1. DEXAMETHASONE [Suspect]
     Indication: MULTIPLE MYELOMA
     Dosage: 40MG/DAY, ORAL
     Route: 048
     Dates: start: 20011012, end: 20011015
  2. DEXAMETHASONE [Suspect]
     Indication: MULTIPLE MYELOMA
     Dosage: 40MG/DAY, ORAL
     Route: 048
     Dates: start: 20011019, end: 20011022
  3. MULTI-VITAMIN [Concomitant]
  4. LISINOPRIL AND HYDROCHLOROTHIAZIDE [Concomitant]
  5. VERAPAMIL [Concomitant]
  6. LEVOTHYROXINE [Concomitant]
  7. POTASSIUM CHLORIDE [Concomitant]
  8. NIZATIDINE [Concomitant]
  9. EPOETIN ALFA [Concomitant]
  10. CALCIUM CARMONATE [Concomitant]
  11. PAMIDRONATE DISODIUM [Concomitant]
  12. HEPARIN [Concomitant]
  13. COTRIM [Concomitant]
  14. DOLASETRON [Concomitant]
  15. ROFECOXIB [Concomitant]
  16. GEMASENSE INTRAVENOUS [Concomitant]

REACTIONS (12)
  - ACTIVATED PARTIAL THROMBOPLASTIN TIME PROLONGED [None]
  - COAGULOPATHY [None]
  - DIALYSIS [None]
  - DYSPNOEA [None]
  - FLUID INTAKE REDUCED [None]
  - GENERAL PHYSICAL HEALTH DETERIORATION [None]
  - HAEMOPTYSIS [None]
  - OLIGURIA [None]
  - PATHOLOGICAL FRACTURE [None]
  - PROTHROMBIN TIME PROLONGED [None]
  - RENAL FAILURE ACUTE [None]
  - RESPIRATORY ARREST [None]
